FAERS Safety Report 15839207 (Version 1)
Quarter: 2019Q1

REPORT INFORMATION
  Report Type: Spontaneous
  Country: US (occurrence: US)
  Receive Date: 20190117
  Receipt Date: 20190117
  Transmission Date: 20190417
  Serious: Yes (Life-Threatening, Hospitalization)
  Sender: FDA-Public Use
  Company Number: US-TEVA-2019-US-999618

PATIENT
  Sex: Male

DRUGS (4)
  1. PACERONE [Suspect]
     Active Substance: AMIODARONE HYDROCHLORIDE
     Indication: ATRIAL FIBRILLATION
     Route: 065
  2. AMIODARONE [Suspect]
     Active Substance: AMIODARONE
     Indication: ATRIAL FIBRILLATION
     Dates: start: 201301
  3. AMIODARONE [Suspect]
     Active Substance: AMIODARONE
     Indication: ATRIAL FIBRILLATION
     Dates: start: 201301
  4. CORDARONE [Suspect]
     Active Substance: AMIODARONE HYDROCHLORIDE
     Indication: ATRIAL FIBRILLATION
     Route: 065

REACTIONS (16)
  - Thyroid disorder [Unknown]
  - Respiratory failure [Unknown]
  - Dyspnoea exertional [Unknown]
  - Chest pain [Unknown]
  - Product use in unapproved indication [Unknown]
  - Pulmonary fibrosis [Unknown]
  - Thyroid function test abnormal [Unknown]
  - Weight fluctuation [Unknown]
  - Fatigue [Unknown]
  - Asthenia [Unknown]
  - Cough [Unknown]
  - Product prescribing error [Unknown]
  - Dyspnoea [Unknown]
  - Dizziness [Unknown]
  - Adverse drug reaction [Unknown]
  - Wheezing [Unknown]

NARRATIVE: CASE EVENT DATE: 201509
